FAERS Safety Report 16682122 (Version 3)
Quarter: 2019Q3

REPORT INFORMATION
  Report Type: Spontaneous
  Country: FR (occurrence: FR)
  Receive Date: 20190808
  Receipt Date: 20190813
  Transmission Date: 20191004
  Serious: Yes (Hospitalization)
  Sender: FDA-Public Use
  Company Number: FR-PFIZER INC-2019338519

PATIENT
  Age: 81 Year
  Sex: Female

DRUGS (11)
  1. SPIRONOLACTONE. [Suspect]
     Active Substance: SPIRONOLACTONE
     Indication: HYPERTENSION
     Dosage: UNK
     Route: 065
  2. CITALOPRAM HYDROCHLORIDE [Suspect]
     Active Substance: CITALOPRAM HYDROCHLORIDE
     Dosage: UNK
     Route: 065
  3. SIMVASTATINE [Concomitant]
     Active Substance: SIMVASTATIN
     Dosage: UNK
  4. BISOPROLOL FUMARATE. [Concomitant]
     Active Substance: BISOPROLOL FUMARATE
     Dosage: UNK
  5. PANTOPRAZOLE [Suspect]
     Active Substance: PANTOPRAZOLE
     Dosage: UNK
     Route: 065
  6. RAMIPRIL. [Suspect]
     Active Substance: RAMIPRIL
     Indication: HYPERTENSION
     Dosage: UNK
     Route: 065
  7. ELIQUIS [Concomitant]
     Active Substance: APIXABAN
     Dosage: UNK
  8. PYRIDOXINE [Concomitant]
     Active Substance: PYRIDOXINE
     Dosage: UNK
  9. THIAMINE. [Concomitant]
     Active Substance: THIAMINE
     Dosage: UNK
  10. FUROSEMIDE. [Suspect]
     Active Substance: FUROSEMIDE
     Indication: HYPERTENSION
     Dosage: UNK
     Route: 065
  11. AMLODIPINE [Concomitant]
     Active Substance: AMLODIPINE BESYLATE
     Dosage: UNK

REACTIONS (3)
  - Asthenia [Recovering/Resolving]
  - Hyponatraemia [Recovered/Resolved]
  - Dehydration [Recovered/Resolved]

NARRATIVE: CASE EVENT DATE: 20190704
